FAERS Safety Report 24885318 (Version 2)
Quarter: 2025Q1

REPORT INFORMATION
  Report Type: Report from Study
  Country: CA (occurrence: CA)
  Receive Date: 20250124
  Receipt Date: 20250217
  Transmission Date: 20250409
  Serious: Yes (Other)
  Sender: BLUEPRINT MEDICINES
  Company Number: CA-BPMC-SO-CA-2024-002475

PATIENT
  Age: 68 Year
  Sex: Male

DRUGS (5)
  1. AVAPRITINIB [Suspect]
     Active Substance: AVAPRITINIB
     Indication: Gastrointestinal stromal tumour
     Route: 048
  2. AVAPRITINIB [Suspect]
     Active Substance: AVAPRITINIB
     Route: 048
     Dates: start: 20220509
  3. AVAPRITINIB [Suspect]
     Active Substance: AVAPRITINIB
     Route: 048
  4. AVAPRITINIB [Suspect]
     Active Substance: AVAPRITINIB
     Route: 065
  5. AVAPRITINIB [Suspect]
     Active Substance: AVAPRITINIB
     Route: 048
     Dates: start: 20220509

REACTIONS (5)
  - Gastric ulcer [Unknown]
  - Paraesthesia [Unknown]
  - White blood cell count decreased [Unknown]
  - Hair colour changes [Unknown]
  - Off label use [Unknown]
